FAERS Safety Report 20484496 (Version 2)
Quarter: 2022Q2

REPORT INFORMATION
  Report Type: Spontaneous
  Country: JP (occurrence: JP)
  Receive Date: 20220217
  Receipt Date: 20220413
  Transmission Date: 20220721
  Serious: Yes (Other)
  Sender: FDA-Public Use
  Company Number: JP-PFIZER INC-202200269460

PATIENT
  Age: 56 Year
  Sex: Male
  Weight: 72 kg

DRUGS (8)
  1. LYRICA [Suspect]
     Active Substance: PREGABALIN
     Indication: Neuralgia
     Dosage: 25 MG, 1X/DAY, IN THE EVENING
     Route: 048
     Dates: start: 20210821, end: 20210827
  2. LYRICA [Suspect]
     Active Substance: PREGABALIN
     Dosage: 25 MG, 2X/DAY (IN THE MORNING AND THE EVENING)
     Route: 048
     Dates: start: 20210828, end: 20211009
  3. LYRICA [Suspect]
     Active Substance: PREGABALIN
     Dosage: 25 MG, 1X/DAY, IN THE EVENING
     Route: 048
     Dates: start: 20211010, end: 20220115
  4. GLICLAZIDE [Suspect]
     Active Substance: GLICLAZIDE
     Indication: Diabetes mellitus
     Dosage: 40 MG, 1X/DAY
     Route: 048
     Dates: start: 20210710, end: 20210911
  5. GLICLAZIDE [Suspect]
     Active Substance: GLICLAZIDE
     Dosage: 20 MG, 1X/DAY
     Dates: start: 20210913
  6. SITAGLIPTIN [Concomitant]
     Active Substance: SITAGLIPTIN
     Indication: Diabetes mellitus
     Dosage: 50 MG, 1X/DAY, IN THE MORNING
     Route: 048
     Dates: start: 20210710
  7. METFORMIN HYDROCHLORIDE [Concomitant]
     Active Substance: METFORMIN HYDROCHLORIDE
     Indication: Diabetes mellitus
     Dosage: 250 MG, 3X/DAY (AFTER MEAL)
     Route: 048
     Dates: start: 20210710
  8. AMMONIUM GLYCYRRHIZATE\GLYCINE\RACEMETHIONINE [Concomitant]
     Active Substance: AMMONIUM GLYCYRRHIZATE\GLYCINE\RACEMETHIONINE
     Indication: Hepatic function abnormal
     Dosage: 2 DF, 3X/DAY (AFTER MEAL)
     Route: 048
     Dates: start: 20210812

REACTIONS (1)
  - Hypokalaemia [Recovered/Resolved]
